FAERS Safety Report 20570606 (Version 1)
Quarter: 2022Q1

REPORT INFORMATION
  Report Type: Spontaneous
  Country: IT (occurrence: IT)
  Receive Date: 20220309
  Receipt Date: 20220309
  Transmission Date: 20220423
  Serious: Yes (Other)
  Sender: FDA-Public Use
  Company Number: None

PATIENT
  Age: 31 Year
  Sex: Female

DRUGS (5)
  1. LEVETIRACETAM [Suspect]
     Active Substance: LEVETIRACETAM
     Indication: Epilepsy
     Dosage: 750 MILLIGRAM, 2X/DAY (BID)
     Route: 048
     Dates: start: 20210416
  2. MODERNA COVID-19 VACCINE [Suspect]
     Active Substance: ELASOMERAN
     Indication: COVID-19 immunisation
     Dosage: .5 MILLIGRAM, TOTAL
     Route: 030
     Dates: start: 20220131, end: 20220131
  3. RIVOTRIL [Concomitant]
     Active Substance: CLONAZEPAM
     Indication: Product used for unknown indication
  4. OCREVUS [Concomitant]
     Active Substance: OCRELIZUMAB
     Indication: Multiple sclerosis
     Route: 042
     Dates: start: 20191203
  5. LAMOTRIGINE [Concomitant]
     Active Substance: LAMOTRIGINE
     Indication: Epilepsy

REACTIONS (5)
  - Vomiting [Not Recovered/Not Resolved]
  - Confusional state [Not Recovered/Not Resolved]
  - Epilepsy [Not Recovered/Not Resolved]
  - Syncope [Not Recovered/Not Resolved]
  - COVID-19 immunisation [Unknown]

NARRATIVE: CASE EVENT DATE: 20220131
